FAERS Safety Report 21239525 (Version 3)
Quarter: 2022Q3

REPORT INFORMATION
  Report Type: Spontaneous
  Country: US (occurrence: US)
  Receive Date: 20220822
  Receipt Date: 20220922
  Transmission Date: 20221027
  Serious: No
  Sender: FDA-Public Use
  Company Number: US-BRISTOL-MYERS SQUIBB COMPANY-2022-092900

PATIENT
  Age: 45 Year
  Sex: Female

DRUGS (1)
  1. REVLIMID [Suspect]
     Active Substance: LENALIDOMIDE
     Indication: Plasma cell myeloma
     Dosage: FREQ:TAKE 1 CAPSULE BY MOUTH DAILY FOR 21 DAYS, OFF 7 DAYS, 28 DAY CYCLE
     Route: 048
     Dates: start: 20220120

REACTIONS (1)
  - Illness [Not Recovered/Not Resolved]
